FAERS Safety Report 20967284 (Version 4)
Quarter: 2022Q4

REPORT INFORMATION
  Report Type: Spontaneous
  Country: CA (occurrence: CA)
  Receive Date: 20220616
  Receipt Date: 20221012
  Transmission Date: 20230113
  Serious: Yes (Other)
  Sender: FDA-Public Use
  Company Number: CA-CELLTRION INC.-2022CA008201

PATIENT

DRUGS (10)
  1. INFLECTRA [Suspect]
     Active Substance: INFLIXIMAB-DYYB
     Indication: Crohn^s disease
     Dosage: 5 MG/KG, INDUCTION DOSES AT WEEK 0, 2 AND 6, THEN EVERY 8 WEEKS ROUNDED TO NEAREST VIAL
     Route: 042
     Dates: start: 20171019, end: 20200910
  2. INFLECTRA [Suspect]
     Active Substance: INFLIXIMAB-DYYB
     Dosage: 10 MG/KG, ROUNDED TO NEAREST VIAL EVERY 8 WEEK
     Route: 042
     Dates: start: 20201103
  3. INFLECTRA [Suspect]
     Active Substance: INFLIXIMAB-DYYB
     Dosage: 10 MG/KG, ROUNDED TO NEAREST VIAL EVERY 8 WEEK
     Route: 042
     Dates: start: 20220324
  4. INFLECTRA [Suspect]
     Active Substance: INFLIXIMAB-DYYB
     Dosage: 10 MG/KG, ROUNDED TO NEAREST VIAL EVERY 8 WEEK
     Route: 042
     Dates: start: 20220519
  5. INFLECTRA [Suspect]
     Active Substance: INFLIXIMAB-DYYB
     Dosage: 10 MG/KG, ROUNDED TO NEAREST VIAL EVERY 8 WEEK
     Route: 042
     Dates: start: 20220606
  6. INFLECTRA [Suspect]
     Active Substance: INFLIXIMAB-DYYB
     Dosage: 10 MG/KG, ROUNDED TO NEAREST VIAL EVERY 8 WEEK
     Route: 042
     Dates: start: 20220805
  7. INFLECTRA [Suspect]
     Active Substance: INFLIXIMAB-DYYB
     Dosage: 10 MG/KG, ROUNDED TO NEAREST VIAL EVERY 8 WEEK
     Route: 042
     Dates: start: 20220929
  8. METHOTREXATE [Concomitant]
     Active Substance: METHOTREXATE
     Indication: Polymyalgia rheumatica
     Dosage: 17 MG, WEEKLY, 17.5MG WEEKLY
     Route: 048
  9. PREDNISONE [Concomitant]
     Active Substance: PREDNISONE
     Dosage: UNK
     Route: 065
  10. PREDNISONE [Concomitant]
     Active Substance: PREDNISONE
     Dosage: 1 DF,DOSAGE NOT AVAILABLE - DECREASING DOSES
     Route: 065

REACTIONS (3)
  - Skin cancer [Recovered/Resolved]
  - Inappropriate schedule of product administration [Unknown]
  - Arthralgia [Unknown]

NARRATIVE: CASE EVENT DATE: 20220101
